FAERS Safety Report 11349580 (Version 2)
Quarter: 2015Q4

REPORT INFORMATION
  Report Type: Report from Study
  Country: JP (occurrence: JP)
  Receive Date: 20150807
  Receipt Date: 20151029
  Transmission Date: 20160304
  Serious: Yes (Hospitalization)
  Sender: FDA-Public Use
  Company Number: JP-ABBVIE-15P-087-1421737-00

PATIENT
  Age: 27 Year
  Sex: Male
  Weight: 63 kg

DRUGS (5)
  1. HUMIRA [Suspect]
     Active Substance: ADALIMUMAB
     Indication: CROHN^S DISEASE
     Route: 058
     Dates: start: 20130424, end: 20130424
  2. MESALAZINE [Concomitant]
     Active Substance: MESALAMINE
     Indication: CROHN^S DISEASE
     Route: 048
  3. HUMIRA [Suspect]
     Active Substance: ADALIMUMAB
     Route: 058
     Dates: start: 20130522
  4. CLOSTRIDIUM BUTYRICUM [Concomitant]
     Active Substance: CLOSTRIDIUM BUTYRICUM SPORES STRAIN M-55
     Indication: CROHN^S DISEASE
     Route: 048
  5. HUMIRA [Suspect]
     Active Substance: ADALIMUMAB
     Route: 058
     Dates: start: 20130508, end: 20130508

REACTIONS (11)
  - Injury [Unknown]
  - Ulcer [Unknown]
  - Post-traumatic neck syndrome [Recovered/Resolved]
  - Headache [Recovered/Resolved]
  - Road traffic accident [Unknown]
  - Cerebrospinal fluid leakage [Unknown]
  - Dizziness [Recovering/Resolving]
  - Insomnia [Recovered/Resolved]
  - Back pain [Recovered/Resolved]
  - Tension headache [Unknown]
  - Abdominal pain upper [Recovered/Resolved]

NARRATIVE: CASE EVENT DATE: 20131111
